FAERS Safety Report 5009458-0 (Version None)
Quarter: 2006Q2

REPORT INFORMATION
  Report Type: 
  Country: None (occurrence: None)
  Receive Date: 20060522
  Receipt Date: 20060511
  Transmission Date: 20061013
  Serious: Yes (Hospitalization)
  Sender: FDA-Public Use
  Company Number: 232879K06USA

PATIENT
  Age: 57 Year
  Sex: Female

DRUGS (4)
  1. REBIF [Suspect]
     Indication: MULTIPLE SCLEROSIS
     Dosage: 44 MCG
     Dates: start: 20050426, end: 20060501
  2. BACLOFEN [Concomitant]
  3. NEURONTIN [Concomitant]
  4. PAXIL [Concomitant]

REACTIONS (10)
  - BACK PAIN [None]
  - CHEST PAIN [None]
  - COUGH [None]
  - FATIGUE [None]
  - INFLUENZA LIKE ILLNESS [None]
  - NAUSEA [None]
  - PAIN [None]
  - PLEURISY [None]
  - PNEUMONIA [None]
  - VOMITING [None]
